FAERS Safety Report 8844545 (Version 3)
Quarter: 2013Q4

REPORT INFORMATION
  Report Type: Spontaneous
  Country: US (occurrence: None)
  Receive Date: 20120426
  Receipt Date: 20131226
  Transmission Date: 20140711
  Serious: Yes (Other)
  Sender: FDA-Public Use
  Company Number: PHEH2011US012188

PATIENT
  Age: 56 Year
  Sex: Female

DRUGS (3)
  1. GILENYA [Suspect]
     Indication: MULTIPLE SCLEROSIS
     Route: 048
     Dates: start: 20111219
  2. UNSPECIFIED INGREDIENT [Concomitant]
  3. CHOLESTEROL - AND TRIGLYCERDIE REDUCERS (NO INGREDIENTS/SUBSTANCES) [Concomitant]

REACTIONS (4)
  - Dizziness [None]
  - Hypopnoea [None]
  - Fatigue [None]
  - Paranasal sinus hypersecretion [None]
